FAERS Safety Report 8623345-8 (Version None)
Quarter: 2012Q3

REPORT INFORMATION
  Report Type: 
  Country: None (occurrence: None)
  Receive Date: 20120827
  Receipt Date: 20120816
  Transmission Date: 20120928
  Serious: Yes (Hospitalization, Other)
  Sender: FDA-Public Use
  Company Number: CN-ASTRAZENECA-2011SE42080

PATIENT
  Age: 73 Year
  Sex: Male
  Weight: 55.8 kg

DRUGS (6)
  1. CLOPIDEGREL [Concomitant]
  2. LIPID LOWER AGENT [Concomitant]
  3. IMDUR [Concomitant]
  4. METOPROLOL SUCCINATE [Suspect]
     Indication: CORONARY ARTERY DISEASE
     Route: 048
     Dates: start: 20090101, end: 20110704
  5. SPIRONOLACTONE [Concomitant]
  6. ASPIRIN [Concomitant]

REACTIONS (3)
  - SINUS ARREST [None]
  - SICK SINUS SYNDROME [None]
  - ATRIOVENTRICULAR BLOCK FIRST DEGREE [None]
